FAERS Safety Report 5130180-4 (Version None)
Quarter: 2006Q4

REPORT INFORMATION
  Report Type: 
  Country: None (occurrence: None)
  Receive Date: 20061013
  Receipt Date: 20060927
  Transmission Date: 20070319
  Serious: Yes (Death)
  Sender: FDA-Public Use
  Company Number: US200609001951

PATIENT
  Age: 47 Year
  Sex: Male

DRUGS (5)
  1. ZYPREXA [Suspect]
     Indication: AGITATION
     Dosage: 10 MG, INTRAMUSCULAR
     Route: 030
     Dates: start: 20060101
  2. ZYPREXA [Suspect]
     Indication: AGITATION
     Dosage: 10 MG, INTRAMUSCULAR
     Route: 030
     Dates: start: 20060101
  3. ZYPREXA [Suspect]
     Indication: AGITATION
     Dosage: 10 MG, INTRAMUSCULAR
     Route: 030
     Dates: start: 20060101
  4. ATIVAN [Concomitant]
  5. CLOZARIL [Concomitant]

REACTIONS (3)
  - LOSS OF CONSCIOUSNESS [None]
  - PRESCRIBED OVERDOSE [None]
  - REFUSAL OF TREATMENT BY PATIENT [None]
